FAERS Safety Report 4999232-3 (Version None)
Quarter: 2006Q2

REPORT INFORMATION
  Report Type: 
  Country: None (occurrence: None)
  Receive Date: 20060511
  Receipt Date: 20060502
  Transmission Date: 20061013
  Serious: Yes (Disabling)
  Sender: FDA-Public Use
  Company Number: PHFR2006GB01586

PATIENT
  Age: 63 Year
  Sex: Female

DRUGS (3)
  1. CO-DIOVAN [Suspect]
     Indication: HYPERTENSION
     Route: 048
     Dates: start: 20060216
  2. FOSINOPRIL SODIUM [Concomitant]
     Indication: HYPERTENSION
     Dosage: 20 MG, QD
     Route: 048
     Dates: end: 20060216
  3. RABEPRAZOLE SODIUM [Concomitant]
     Indication: GASTROINTESTINAL DISORDER
     Dosage: 20 MG, QD
     Route: 048

REACTIONS (1)
  - HYPOAESTHESIA [None]
